FAERS Safety Report 5541730-8 (Version None)
Quarter: 2007Q4

REPORT INFORMATION
  Report Type: 
  Country: None (occurrence: None)
  Receive Date: 20071210
  Receipt Date: 20071129
  Transmission Date: 20080405
  Serious: Yes (Hospitalization)
  Sender: FDA-Public Use
  Company Number: FR-AVENTIS-200713847FR

PATIENT
  Age: 53 Year
  Sex: Male

DRUGS (3)
  1. RODOGYL [Suspect]
     Route: 048
     Dates: start: 20070906, end: 20070906
  2. IBUPROFEN [Suspect]
     Route: 048
     Dates: start: 20070906, end: 20070906
  3. HUMALOG [Concomitant]
     Dosage: DOSE: 24-22

REACTIONS (6)
  - BALANITIS [None]
  - CHEILITIS [None]
  - CHILLS [None]
  - FIXED ERUPTION [None]
  - PYREXIA [None]
  - TOXIC EPIDERMAL NECROLYSIS [None]
